FAERS Safety Report 16134909 (Version 4)
Quarter: 2022Q2

REPORT INFORMATION
  Report Type: Spontaneous
  Country: DE (occurrence: DE)
  Receive Date: 20190329
  Receipt Date: 20220502
  Transmission Date: 20220721
  Serious: Yes (Other)
  Sender: FDA-Public Use
  Company Number: PHHY2019DE071262

PATIENT
  Age: 52 Year
  Sex: Female

DRUGS (1)
  1. KETOTIFEN FUMARATE [Suspect]
     Active Substance: KETOTIFEN FUMARATE
     Indication: Seasonal allergy
     Dosage: 1 DRP, QD
     Route: 047
     Dates: start: 20190225, end: 20190225

REACTIONS (4)
  - Eye haemorrhage [Recovered/Resolved]
  - Ocular hyperaemia [Recovered/Resolved]
  - Eye irritation [Recovered/Resolved]
  - Headache [Recovered/Resolved]

NARRATIVE: CASE EVENT DATE: 20190225
